FAERS Safety Report 23098720 (Version 8)
Quarter: 2024Q1

REPORT INFORMATION
  Report Type: Spontaneous
  Country: FR (occurrence: FR)
  Receive Date: 20231024
  Receipt Date: 20240123
  Transmission Date: 20240410
  Serious: Yes (Other)
  Sender: FDA-Public Use
  Company Number: FR-009507513-2308FRA010891

PATIENT
  Sex: Male
  Weight: 86 kg

DRUGS (10)
  1. ISENTRESS [Suspect]
     Active Substance: RALTEGRAVIR POTASSIUM
     Indication: HIV infection
     Dosage: 1 TABLET IN THE MORNING AND EVENING
     Route: 048
     Dates: start: 2009
  2. LOSARTAN POTASSIUM [Suspect]
     Active Substance: LOSARTAN POTASSIUM
     Dosage: STRENGHT: 100 (UNITS NOT PROVIDED)
     Route: 048
  3. NORVIR [Suspect]
     Active Substance: RITONAVIR
     Indication: HIV infection
     Dosage: UNK
     Dates: start: 2009
  4. INTELENCE [Suspect]
     Active Substance: ETRAVIRINE
     Indication: HIV infection
     Dosage: UNK
     Dates: start: 2009
  5. PREZISTA [Suspect]
     Active Substance: DARUNAVIR ETHANOLATE
     Indication: HIV infection
     Dosage: UNK
     Route: 065
     Dates: start: 2009
  6. BROMAZEPAM [Suspect]
     Active Substance: BROMAZEPAM
     Dosage: UNK
  7. BISOPROLOL FUMARATE [Suspect]
     Active Substance: BISOPROLOL FUMARATE
     Dosage: STRENGTH: 1.25 (UNITS NOT PROVIDED)
  8. PRAVASTATIN [Suspect]
     Active Substance: PRAVASTATIN
     Dosage: UNK
  9. ACETAMINOPHEN\CODEINE PHOSPHATE [Suspect]
     Active Substance: ACETAMINOPHEN\CODEINE PHOSPHATE
     Indication: Pain in extremity
     Dosage: UNK
  10. TRAMADOL [Suspect]
     Active Substance: TRAMADOL\TRAMADOL HYDROCHLORIDE
     Indication: Pain in extremity
     Dosage: UNK

REACTIONS (6)
  - Rhabdomyolysis [Not Recovered/Not Resolved]
  - Drug intolerance [Unknown]
  - Carpal tunnel syndrome [Not Recovered/Not Resolved]
  - Amnesia [Unknown]
  - Pain in extremity [Not Recovered/Not Resolved]
  - Drug hypersensitivity [Unknown]
